FAERS Safety Report 10090368 (Version 1)
Quarter: 2014Q2

REPORT INFORMATION
  Report Type: Spontaneous
  Country: US (occurrence: US)
  Receive Date: 20140421
  Receipt Date: 20140421
  Transmission Date: 20141212
  Serious: No
  Sender: FDA-Public Use
  Company Number: US-PFIZER INC-2014110395

PATIENT
  Age: 56 Year
  Sex: Female
  Weight: 63.49 kg

DRUGS (1)
  1. LYRICA [Suspect]
     Indication: GRAFT VERSUS HOST DISEASE
     Dosage: 150 MG, DAILY
     Route: 048
     Dates: end: 20140416

REACTIONS (2)
  - Arthralgia [Unknown]
  - Insomnia [Unknown]
